FAERS Safety Report 5537732-8 (Version None)
Quarter: 2007Q4

REPORT INFORMATION
  Report Type: 
  Country: None (occurrence: None)
  Receive Date: 20071207
  Receipt Date: 20071129
  Transmission Date: 20080405
  Serious: Yes (Hospitalization)
  Sender: FDA-Public Use
  Company Number: JP-SANOFI-SYNTHELABO-F01200701192

PATIENT
  Sex: Female
  Weight: 41.7 kg

DRUGS (3)
  1. HALFDIGOXIN [Concomitant]
     Dosage: 1 TABLET
     Route: 048
     Dates: start: 20070710
  2. VASOLAN [Concomitant]
     Indication: HYPERTENSION
     Dosage: 120 MG
     Route: 048
     Dates: start: 20070710
  3. CLOPIDOGREL [Suspect]
     Indication: CEREBRAL ISCHAEMIA
     Dosage: 50 MG
     Route: 048
     Dates: start: 20070713

REACTIONS (1)
  - CHOLECYSTITIS [None]
